FAERS Safety Report 15949358 (Version 2)
Quarter: 2019Q2

REPORT INFORMATION
  Report Type: Spontaneous
  Country: US (occurrence: US)
  Receive Date: 20190212
  Receipt Date: 20190402
  Transmission Date: 20190711
  Serious: No
  Sender: FDA-Public Use
  Company Number: US-BIOGEN-2019BI00693581

PATIENT
  Sex: Male

DRUGS (3)
  1. TECFIDERA [Suspect]
     Active Substance: DIMETHYL FUMARATE
     Indication: MULTIPLE SCLEROSIS
     Dosage: TAKE 1 CAPSULE BY MOUTH TWICE A DAY
     Route: 050
     Dates: start: 20180114
  2. TECFIDERA [Suspect]
     Active Substance: DIMETHYL FUMARATE
     Dosage: TREATMENT DOSE,?TITRATION DOWN
     Route: 048
     Dates: end: 20190323
  3. TECFIDERA [Suspect]
     Active Substance: DIMETHYL FUMARATE
     Dosage: STARTING DOSE
     Route: 048

REACTIONS (6)
  - Drug ineffective [Unknown]
  - Renal disorder [Unknown]
  - Liver disorder [Unknown]
  - Renal pain [Not Recovered/Not Resolved]
  - Product dose omission [Unknown]
  - Chromaturia [Unknown]

NARRATIVE: CASE EVENT DATE: 2019
